FAERS Safety Report 19253299 (Version 1)
Quarter: 2021Q2

REPORT INFORMATION
  Report Type: Spontaneous
  Country: US (occurrence: US)
  Receive Date: 20210513
  Receipt Date: 20210513
  Transmission Date: 20210717
  Serious: No
  Sender: FDA-Public Use
  Company Number: None

PATIENT
  Age: 44 Year
  Sex: Female
  Weight: 54 kg

DRUGS (1)
  1. OLOPATADINE HYDROCHLORIDE. [Suspect]
     Active Substance: OLOPATADINE HYDROCHLORIDE
     Indication: HYPERSENSITIVITY
     Dosage: ?          QUANTITY:5 DROP(S);?
     Route: 047
     Dates: start: 20210507, end: 20210511

REACTIONS (4)
  - Condition aggravated [None]
  - Product substitution issue [None]
  - Drug ineffective [None]
  - Product packaging difficult to open [None]

NARRATIVE: CASE EVENT DATE: 20210510
